FAERS Safety Report 25747461 (Version 2)
Quarter: 2025Q4

REPORT INFORMATION
  Report Type: Spontaneous
  Country: US (occurrence: US)
  Receive Date: 20250901
  Receipt Date: 20251011
  Transmission Date: 20260118
  Serious: No
  Sender: Kenvue
  Company Number: US-KENVUE-20250807166

PATIENT
  Sex: Male

DRUGS (1)
  1. MENS ROGAINE EXTRA STRENGTH [Suspect]
     Active Substance: MINOXIDIL
     Indication: Alopecia
     Dosage: TWICE DAILY, FOR THREE MONTHS, FOLLOWED THE PRESCRIBED AMOUNT ON THE INSTRUCTIONS
     Route: 065
     Dates: start: 20250301

REACTIONS (1)
  - Therapeutic product effect incomplete [Unknown]
